FAERS Safety Report 4473406-2 (Version None)
Quarter: 2004Q3

REPORT INFORMATION
  Report Type: 
  Country: None (occurrence: None)
  Receive Date: 20040917
  Receipt Date: 20040816
  Transmission Date: 20050211
  Serious: Yes (Hospitalization)
  Sender: FDA-Public Use
  Company Number: US-JNJFOC-20040400897

PATIENT
  Age: 53 Year
  Sex: Female
  Weight: 70.7611 kg

DRUGS (3)
  1. ORTHO EVRA [Suspect]
     Indication: CONTRACEPTION
     Dosage: 1 DOSE(S), 3 IN 4 WEEK, TRANSDERMAL
     Route: 062
     Dates: start: 20020601
  2. ESTRADIOL [Suspect]
     Dosage: 25 MG, 1 IN 1 DAY, ORAL
     Route: 048
  3. SYNTHROID (LEVOTHYROXINE SODIUM) UNSPECIFIED [Concomitant]

REACTIONS (1)
  - CEREBROVASCULAR ACCIDENT [None]
